FAERS Safety Report 20486580 (Version 3)
Quarter: 2022Q2

REPORT INFORMATION
  Report Type: Spontaneous
  Country: GB (occurrence: GB)
  Receive Date: 20220217
  Receipt Date: 20220428
  Transmission Date: 20220720
  Serious: Yes (Other)
  Sender: FDA-Public Use
  Company Number: GB-NOVARTISPH-NVSC2022GB034061

PATIENT

DRUGS (1)
  1. ZOLGENSMA [Suspect]
     Active Substance: ONASEMNOGENE ABEPARVOVEC-XIOI
     Indication: Product used for unknown indication
     Dosage: UNKNOWN
     Route: 042

REACTIONS (2)
  - Pneumatosis intestinalis [Unknown]
  - Rectal haemorrhage [Unknown]
